FAERS Safety Report 7956512-7 (Version None)
Quarter: 2011Q4

REPORT INFORMATION
  Report Type: 
  Country: None (occurrence: None)
  Receive Date: 20111205
  Receipt Date: 20111128
  Transmission Date: 20120403
  Serious: No
  Sender: FDA-Public Use
  Company Number: US-PFIZER INC-2011290786

PATIENT
  Sex: Female

DRUGS (3)
  1. MULTI-VITAMINS [Concomitant]
     Dosage: UNK
  2. PENICILLIN G PROCAINE [Suspect]
     Dosage: UNK
  3. LEVOTHYROXINE [Concomitant]
     Dosage: UNK

REACTIONS (1)
  - HYPERSENSITIVITY [None]
